FAERS Safety Report 7898281-5 (Version None)
Quarter: 2011Q4

REPORT INFORMATION
  Report Type: 
  Country: None (occurrence: None)
  Receive Date: 20111107
  Receipt Date: 20111024
  Transmission Date: 20120403
  Serious: Yes (Hospitalization)
  Sender: FDA-Public Use
  Company Number: GB-GLAXOSMITHKLINE-B0760549A

PATIENT
  Sex: Female
  Weight: 93.8 kg

DRUGS (8)
  1. ALBUTEROL SULFATE AUTOHALER [Concomitant]
     Indication: ASTHMA
  2. DOCETAXEL [Suspect]
     Indication: BREAST CANCER METASTATIC
     Dosage: 75MGM2 EVERY 3 WEEKS
     Route: 042
     Dates: start: 20111020
  3. ACETAMINOPHEN [Concomitant]
  4. BENDROFLUAZIDE [Concomitant]
     Indication: HYPERTENSION
  5. LOPERAMIDE HCL [Concomitant]
     Dates: start: 20111021
  6. DOMPERIDONE [Concomitant]
     Indication: PROPHYLAXIS OF NAUSEA AND VOMITING
     Dates: start: 20111020
  7. BECLOMETHASONE DIPROPIONATE [Concomitant]
     Indication: ASTHMA
  8. LAPATINIB [Suspect]
     Indication: BREAST CANCER METASTATIC
     Dosage: 1250MG PER DAY
     Route: 048
     Dates: start: 20111020

REACTIONS (5)
  - NEUTROPENIA [None]
  - ABDOMINAL PAIN [None]
  - DIARRHOEA [None]
  - VOMITING [None]
  - PYREXIA [None]
